FAERS Safety Report 9036897 (Version 1)
Quarter: 2013Q1

REPORT INFORMATION
  Report Type: Spontaneous
  Country: US (occurrence: None)
  Receive Date: 20130123
  Receipt Date: 20130123
  Transmission Date: 20140127
  Serious: Yes (Death)
  Sender: FDA-Public Use
  Company Number: None

PATIENT
  Age: 63 Year
  Sex: Male
  Weight: 81.19 kg

DRUGS (1)
  1. BEVACIZUMAB [Suspect]
     Indication: NON-SMALL CELL LUNG CANCER
     Dosage: 400 MG, EVERY 3 WEEKS, IV DRIP
     Route: 041
     Dates: start: 20121105, end: 20121105

REACTIONS (6)
  - Productive cough [None]
  - Haemoptysis [None]
  - Platelet count decreased [None]
  - Loss of consciousness [None]
  - Fall [None]
  - Pulse absent [None]
